FAERS Safety Report 9735480 (Version 1)
Quarter: 2013Q4

REPORT INFORMATION
  Report Type: Spontaneous
  Country: US (occurrence: None)
  Receive Date: 20131204
  Receipt Date: 20131204
  Transmission Date: 20140711
  Serious: Yes (Death)
  Sender: FDA-Public Use
  Company Number: US-ALKEM-000329

PATIENT
  Age: 47 Year
  Sex: 0

DRUGS (6)
  1. GABAPENTIN [Suspect]
  2. LORAZEPAM(LORAZEPAM) [Suspect]
  3. OXCARBAZEPINE [Suspect]
  4. BUPROPION [Concomitant]
  5. SERTRALINE(SERTRALINE) [Concomitant]
  6. QUETIAPINE(QUETIAPINE) [Concomitant]

REACTIONS (3)
  - Overdose [None]
  - Completed suicide [None]
  - Exposure via ingestion [None]
